FAERS Safety Report 16611243 (Version 1)
Quarter: 2019Q3

REPORT INFORMATION
  Report Type: Spontaneous
  Country: DE (occurrence: DE)
  Receive Date: 20190722
  Receipt Date: 20190722
  Transmission Date: 20191004
  Serious: Yes (Hospitalization)
  Sender: FDA-Public Use
  Company Number: DE-PFIZER INC-2019306379

PATIENT
  Age: 77 Year
  Sex: Female

DRUGS (5)
  1. LORAZEPAM. [Suspect]
     Active Substance: LORAZEPAM
     Dosage: 1 MG, UNK 1-0-1-0
  2. RISPERIDONE. [Suspect]
     Active Substance: RISPERIDONE
     Dosage: 1 MG, UNK
  3. PIPAMPERON [Suspect]
     Active Substance: PIPAMPERONE HYDROCHLORIDE
     Dosage: 40 MG, UNK 0-0-1-0
  4. MIRTAZAPINE. [Suspect]
     Active Substance: MIRTAZAPINE
     Dosage: 45 MG, UNK 0-0-1-0
  5. RAMIPRIL/HYDROCHLOROTHIAZIDE EG [Concomitant]
     Dosage: UNK

REACTIONS (1)
  - Fall [Unknown]

NARRATIVE: CASE EVENT DATE: 20171109
